FAERS Safety Report 5511110-X (Version None)
Quarter: 2007Q4

REPORT INFORMATION
  Report Type: 
  Country: None (occurrence: None)
  Receive Date: 20071109
  Receipt Date: 20071031
  Transmission Date: 20080405
  Serious: Yes (Hospitalization)
  Sender: FDA-Public Use
  Company Number: US-AVENTIS-200710422US

PATIENT
  Sex: Male
  Weight: 111.4 kg

DRUGS (21)
  1. LOVENOX [Suspect]
     Route: 058
     Dates: start: 20061101, end: 20061101
  2. LOVENOX [Suspect]
     Route: 058
     Dates: start: 20061101, end: 20061101
  3. LOVENOX [Suspect]
     Route: 058
     Dates: start: 20061101, end: 20061101
  4. LOVENOX [Suspect]
     Route: 058
     Dates: start: 20061101, end: 20061101
  5. PLAVIX [Suspect]
     Route: 048
     Dates: start: 20061101, end: 20061101
  6. PLAVIX [Suspect]
     Route: 048
     Dates: start: 20061101, end: 20061101
  7. PLAVIX [Suspect]
     Route: 048
     Dates: start: 20061101, end: 20061101
  8. PLAVIX [Suspect]
     Route: 048
     Dates: start: 20061101, end: 20061101
  9. INTEGRILIN [Suspect]
     Dosage: DOSE: 200 MCG/MIN WITHIN 24 HOURS
     Route: 042
     Dates: start: 20061101, end: 20061101
  10. INTEGRILIN [Suspect]
     Dosage: DOSE: 200 MCG/MIN WITHIN 24 HOURS
     Route: 042
     Dates: start: 20061101, end: 20061101
  11. UNKNOWN DRUG [Suspect]
     Dosage: DOSE: UNK
     Dates: start: 20061101, end: 20061103
  12. GEMFIBROZIL [Concomitant]
     Dosage: DOSE: UNK
  13. METOPROLOL SUCCINATE [Concomitant]
     Indication: HYPERTENSION
     Dosage: DOSE: UNK
     Dates: start: 20061101, end: 20061101
  14. METOPROLOL SUCCINATE [Concomitant]
     Indication: CORONARY ARTERY DISEASE
     Dosage: DOSE: UNK
     Dates: start: 20061101, end: 20061101
  15. METOPROLOL SUCCINATE [Concomitant]
     Dosage: DOSE: UNK
     Dates: start: 20061101, end: 20061101
  16. LISINOPRIL [Concomitant]
     Indication: HYPERTENSION
     Dosage: DOSE: UNK
  17. ACETYLSALICYLIC ACID SRT [Concomitant]
     Indication: CORONARY ARTERY DISEASE
     Dosage: DOSE: UNK
     Dates: start: 20061031, end: 20061101
  18. GLYCERYL TRINNTRATE [Concomitant]
     Indication: CHEST PAIN
     Dosage: DOSE: UNK
     Dates: start: 20061031, end: 20061101
  19. FUROSEMIDE [Concomitant]
     Dosage: DOSE: UNK
  20. RAMIPRIL [Concomitant]
     Indication: CORONARY ARTERY DISEASE
     Dosage: DOSE: UNK
     Dates: start: 20061101, end: 20061101
  21. NITROGLYCERIN [Concomitant]
     Dosage: DOSE: UNK
     Dates: start: 20061031, end: 20061101

REACTIONS (3)
  - CONTUSION [None]
  - PAIN IN EXTREMITY [None]
  - VASCULAR PSEUDOANEURYSM [None]
